FAERS Safety Report 13349208 (Version 2)
Quarter: 2017Q2

REPORT INFORMATION
  Report Type: Spontaneous
  Country: AU (occurrence: AU)
  Receive Date: 20170320
  Receipt Date: 20170406
  Transmission Date: 20170830
  Serious: Yes (Other)
  Sender: FDA-Public Use
  Company Number: AU-CONCORDIA PHARMACEUTICALS INC.-GSH201703-001789

PATIENT
  Sex: Female
  Weight: 2.6 kg

DRUGS (4)
  1. TRANYLCYPROMINE [Suspect]
     Active Substance: TRANYLCYPROMINE
     Indication: DEPRESSION
     Dosage: BETWEEN 100 MG AND 130 MG DAILY
     Route: 064
  2. PIMOZIDE. [Suspect]
     Active Substance: PIMOZIDE
     Indication: DEPRESSION
     Dosage: 1-2 MG DAILY
     Route: 064
  3. DIAZEPAM. [Suspect]
     Active Substance: DIAZEPAM
     Indication: DEPRESSION
     Dosage: 5-10 MG DAILY
     Route: 064
  4. ALPRAZOLAM. [Suspect]
     Active Substance: ALPRAZOLAM
     Indication: DEPRESSION
     Dosage: 1 - 2 MG DAILY
     Route: 064

REACTIONS (18)
  - Respiratory distress [Unknown]
  - Abdominal distension [Recovered/Resolved]
  - Feeding intolerance [Recovered/Resolved]
  - Craniosynostosis [Unknown]
  - Deafness neurosensory [Unknown]
  - Micrognathia [Unknown]
  - Exposure during breast feeding [Unknown]
  - Foetal growth restriction [Unknown]
  - Atrial septal defect [Unknown]
  - Congenital central nervous system anomaly [Unknown]
  - Atrioventricular septal defect [Unknown]
  - Hypertelorism of orbit [Unknown]
  - Patent ductus arteriosus [Unknown]
  - Scoliosis [Unknown]
  - Developmental delay [Unknown]
  - Exophthalmos [Unknown]
  - Eyelid ptosis [Unknown]
  - Foetal exposure during pregnancy [Unknown]
